FAERS Safety Report 22344600 (Version 1)
Quarter: 2023Q2

REPORT INFORMATION
  Report Type: Spontaneous
  Country: PL (occurrence: PL)
  Receive Date: 20230519
  Receipt Date: 20230519
  Transmission Date: 20230721
  Serious: Yes (Other)
  Sender: FDA-Public Use
  Company Number: PL-002147023-NVSC2023PL111669

PATIENT
  Age: 75 Year
  Sex: Female

DRUGS (4)
  1. RIBOCICLIB [Suspect]
     Active Substance: RIBOCICLIB
     Indication: Breast cancer
     Dosage: UNK
     Route: 065
  2. AMLODIPINE BESYLATE [Suspect]
     Active Substance: AMLODIPINE BESYLATE
     Indication: Product used for unknown indication
     Dosage: 5 MG, QD
     Route: 065
     Dates: start: 202111
  3. TRETINOIN [Concomitant]
     Active Substance: TRETINOIN
     Indication: Product used for unknown indication
     Dosage: 12.5 MG (IN THE EVENING)
     Route: 065
     Dates: start: 202111
  4. LETROZOLE [Concomitant]
     Active Substance: LETROZOLE
     Indication: Product used for unknown indication
     Dosage: 2.5 MG, QD
     Route: 065
     Dates: start: 202111

REACTIONS (8)
  - Atrial fibrillation [Unknown]
  - Hypokalaemia [Unknown]
  - Arrhythmia [Unknown]
  - Defect conduction intraventricular [Unknown]
  - Supraventricular extrasystoles [Unknown]
  - Tachyarrhythmia [Recovering/Resolving]
  - Heart rate increased [Recovering/Resolving]
  - Asthenia [Recovering/Resolving]
